FAERS Safety Report 17011683 (Version 1)
Quarter: 2019Q4

REPORT INFORMATION
  Report Type: Spontaneous
  Country: US (occurrence: US)
  Receive Date: 20191108
  Receipt Date: 20191108
  Transmission Date: 20200122
  Serious: No
  Sender: FDA-Public Use
  Company Number: US-JNJFOC-20191101741

PATIENT
  Sex: Female

DRUGS (2)
  1. REMICADE [Suspect]
     Active Substance: INFLIXIMAB
     Indication: OSTEOARTHRITIS
  2. REMICADE [Suspect]
     Active Substance: INFLIXIMAB
     Indication: ARTHRITIS
     Dosage: 500 UNITS
     Route: 042
     Dates: end: 201909

REACTIONS (6)
  - Product use in unapproved indication [Unknown]
  - Injury [Unknown]
  - Thyroid mass [Not Recovered/Not Resolved]
  - Off label use [Unknown]
  - Intervertebral disc degeneration [Not Recovered/Not Resolved]
  - Osteopenia [Not Recovered/Not Resolved]
